FAERS Safety Report 8771963 (Version 4)
Quarter: 2013Q1

REPORT INFORMATION
  Report Type: Spontaneous
  Country: US (occurrence: US)
  Receive Date: 20120906
  Receipt Date: 20130214
  Transmission Date: 20140127
  Serious: Yes (Other)
  Sender: FDA-Public Use
  Company Number: US-AMGEN-USASP2012055953

PATIENT
  Age: 54 Year
  Sex: Male
  Weight: 84.81 kg

DRUGS (6)
  1. EPOGEN [Suspect]
     Indication: RENAL FAILURE CHRONIC
     Dosage: UNK UNK, 2 TIMES/WK
     Dates: end: 20120831
  2. PROTONIX [Concomitant]
     Indication: GASTROOESOPHAGEAL REFLUX DISEASE
     Dosage: 40 MG, QD
     Route: 048
     Dates: start: 201202
  3. LOPRESSOR [Concomitant]
     Indication: HYPERTENSION
     Dosage: 100 MG, BID
     Dates: start: 201202
  4. ASPIRIN [Concomitant]
     Indication: CORONARY ARTERY DISEASE
     Dosage: 81 MG, QD
     Dates: start: 201202
  5. ZOCOR [Concomitant]
     Indication: LIPIDS INCREASED
     Dosage: 40 MG, QD
     Dates: start: 201202
  6. FLOMAX                             /01280302/ [Concomitant]
     Indication: BENIGN PROSTATIC HYPERPLASIA
     Dosage: 0.4 MG, QD
     Dates: start: 201202

REACTIONS (5)
  - Bone marrow failure [Unknown]
  - Therapeutic response decreased [Unknown]
  - Anti-erythropoietin antibody positive [Unknown]
  - Neutralising antibodies positive [Unknown]
  - Anaemia [Not Recovered/Not Resolved]
